FAERS Safety Report 7650132-X (Version None)
Quarter: 2011Q3

REPORT INFORMATION
  Report Type: 
  Country: None (occurrence: None)
  Receive Date: 20110727
  Receipt Date: 20110719
  Transmission Date: 20111222
  Serious: Yes (Other)
  Sender: FDA-Public Use
  Company Number: DKLU1072090

PATIENT
  Age: 23 Month
  Sex: Male

DRUGS (1)
  1. SABRIL [Suspect]
     Indication: INFANTILE SPASMS
     Dosage: 500 MG MILLIGRAMS, 2 IN 1 D, ORAL
     Route: 048
     Dates: end: 20110713

REACTIONS (3)
  - TARDIVE DYSKINESIA [None]
  - APHAGIA [None]
  - SOMNOLENCE [None]
